FAERS Safety Report 6078892 (Version 1)
Quarter: 2020Q3

REPORT INFORMATION
  Report Type: Spontaneous
  Country: IN (occurrence: IN)
  Receive Date: 20060707
  Receipt Date: 20060707
  Transmission Date: 20201104
  Serious: Yes (Hospitalization)
  Sender: FDA-Public Use
  Company Number: IN-ROCHE-453830

PATIENT
  Sex: Female
  Weight: 65 kg

DRUGS (1)
  1. IBANDRONIC ACID. [Suspect]
     Active Substance: IBANDRONIC ACID
     Dosage: FOR THREE DAYS. OTHER INDICATION: BACKACHE. 6 MG IN 250ML NORMAL SALINE ADMINISTERED INTRAVENOUSLY +
     Route: 042
     Dates: start: 20060625, end: 20060626

REACTIONS (4)
  - Dyspnoea [Recovered/Resolved]
  - Chest discomfort [None]
  - Breath sounds abnormal [None]
  - Infusion related reaction [None]

NARRATIVE: CASE EVENT DATE: 20060626
